FAERS Safety Report 7085257-3 (Version None)
Quarter: 2010Q4

REPORT INFORMATION
  Report Type: 
  Country: None (occurrence: None)
  Receive Date: 20101105
  Receipt Date: 20101029
  Transmission Date: 20110411
  Serious: Yes (Other)
  Sender: FDA-Public Use
  Company Number: US-TEVA-253618USA

PATIENT
  Sex: Female

DRUGS (1)
  1. METOCLOPRAMIDE [Suspect]
     Route: 048
     Dates: start: 20090901, end: 20100501

REACTIONS (2)
  - PARKINSON'S DISEASE [None]
  - PARKINSONISM [None]
